FAERS Safety Report 5973090-2 (Version None)
Quarter: 2008Q4

REPORT INFORMATION
  Report Type: 
  Country: None (occurrence: None)
  Receive Date: 20081201
  Receipt Date: 20081118
  Transmission Date: 20090506
  Serious: Yes (Hospitalization, Other)
  Sender: FDA-Public Use
  Company Number: US-ROCHE-580333

PATIENT
  Sex: Female

DRUGS (7)
  1. PEG-INTERFERON A-2A (RO 25-8310) [Suspect]
     Indication: HEPATITIS C
     Dosage: FORM: PRE FILLED SYRINGES
     Route: 065
     Dates: start: 20080429, end: 20081007
  2. RIBAVIRIN [Suspect]
     Indication: HEPATITIS C
     Dosage: IN DIVIDED DOSES
     Route: 065
     Dates: start: 20080429, end: 20081007
  3. AMBIEN [Concomitant]
  4. XANAX [Concomitant]
  5. ATIVAN [Concomitant]
  6. BIRTH CONTROL PILLS NOS [Concomitant]
     Dosage: REPORTED AS 'BIRTH CONTROL PILLS'
  7. EFFEXOR [Concomitant]

REACTIONS (15)
  - ABDOMINAL DISTENSION [None]
  - ABDOMINAL PAIN UPPER [None]
  - ALOPECIA [None]
  - ANXIETY [None]
  - BACK PAIN [None]
  - CRYING [None]
  - DEPRESSION [None]
  - HAEMOGLOBIN DECREASED [None]
  - INSOMNIA [None]
  - MENORRHAGIA [None]
  - NAUSEA [None]
  - SUICIDAL IDEATION [None]
  - VAGINAL HAEMORRHAGE [None]
  - VISUAL IMPAIRMENT [None]
  - WHITE BLOOD CELL COUNT DECREASED [None]
